FAERS Safety Report 8125488-4 (Version None)
Quarter: 2012Q1

REPORT INFORMATION
  Report Type: 
  Country: None (occurrence: None)
  Receive Date: 20120209
  Receipt Date: 20120207
  Transmission Date: 20120608
  Serious: Yes (Death)
  Sender: FDA-Public Use
  Company Number: US-PFIZER INC-2012012390

PATIENT
  Sex: Male

DRUGS (7)
  1. METOPROLOL [Concomitant]
     Indication: BLOOD PRESSURE
     Dosage: 25 MG, UNK
     Route: 048
  2. XALKORI [Suspect]
     Indication: NON-SMALL CELL LUNG CANCER
     Dosage: 250 MG, 2X/DAY
     Route: 048
     Dates: start: 20111021, end: 20111213
  3. MEGACE [Concomitant]
     Indication: INCREASED APPETITE
     Dosage: 20 ML, UNK
     Route: 048
  4. DEXAMETHASONE SODIUM PHOSPHATE [Concomitant]
     Indication: ANTIINFLAMMATORY THERAPY
     Dosage: 4 MG, UNK
     Route: 048
  5. TRAMADOL [Concomitant]
     Indication: PAIN
     Dosage: 50 MG, AS NEEDED
     Route: 048
  6. LORTAB [Concomitant]
     Indication: PAIN
     Dosage: 10/325MG, AS NEEDED
     Route: 048
  7. VALIUM [Concomitant]
     Indication: ANXIETY
     Dosage: 5 MG, UNK
     Route: 048

REACTIONS (2)
  - NON-SMALL CELL LUNG CANCER [None]
  - DISEASE PROGRESSION [None]
